FAERS Safety Report 6736255-8 (Version None)
Quarter: 2010Q2

REPORT INFORMATION
  Report Type: 
  Country: None (occurrence: None)
  Receive Date: 20100521
  Receipt Date: 20100510
  Transmission Date: 20101027
  Serious: Yes (Hospitalization, Other)
  Sender: FDA-Public Use
  Company Number: US-SANOFI-AVENTIS-2010SA027590

PATIENT
  Sex: Female

DRUGS (5)
  1. PLAVIX [Suspect]
     Route: 048
     Dates: start: 20060101, end: 20100501
  2. VASOTEC [Concomitant]
     Indication: HYPERTENSION
     Dates: end: 20100401
  3. LIPITOR [Concomitant]
  4. SYNTHROID [Concomitant]
  5. INSULIN [Concomitant]
     Dates: end: 20100401

REACTIONS (8)
  - HEADACHE [None]
  - HYPOAESTHESIA FACIAL [None]
  - INFUSION SITE THROMBOSIS [None]
  - OFF LABEL USE [None]
  - PARAESTHESIA [None]
  - SPEECH DISORDER [None]
  - TRANSIENT ISCHAEMIC ATTACK [None]
  - VISION BLURRED [None]
